FAERS Safety Report 4568895-9 (Version None)
Quarter: 2005Q1

REPORT INFORMATION
  Report Type: 
  Country: None (occurrence: None)
  Receive Date: 20050203
  Receipt Date: 20050121
  Transmission Date: 20050727
  Serious: Yes (Hospitalization)
  Sender: FDA-Public Use
  Company Number: JP-JNJFOC-20041105028

PATIENT
  Sex: Male
  Weight: 50 kg

DRUGS (7)
  1. REMICADE [Suspect]
     Indication: RHEUMATOID ARTHRITIS
     Route: 058
  2. RHEUMATREX [Suspect]
     Route: 049
  3. RHEUMATREX [Suspect]
     Indication: RHEUMATOID ARTHRITIS
     Route: 049
  4. PREDONINE [Suspect]
     Route: 049
  5. PREDONINE [Suspect]
     Indication: RHEUMATOID ARTHRITIS
     Route: 049
  6. ENDOXAN [Suspect]
     Indication: DRUG USE FOR UNKNOWN INDICATION
  7. INH [Concomitant]

REACTIONS (4)
  - BRONCHITIS ACUTE [None]
  - PNEUMONIA [None]
  - PNEUMONIA ASPERGILLUS [None]
  - PSEUDOMONAS INFECTION [None]
